FAERS Safety Report 11605283 (Version 1)
Quarter: 2015Q4

REPORT INFORMATION
  Report Type: Spontaneous
  Country: US (occurrence: None)
  Receive Date: 20151006
  Receipt Date: 20151006
  Transmission Date: 20160304
  Serious: No
  Sender: FDA-Public Use
  Company Number: None

PATIENT
  Sex: Female

DRUGS (1)
  1. KERYDIN [Suspect]
     Active Substance: TAVABOROLE
     Indication: FUNGAL SKIN INFECTION
     Dosage: APPLIED TO A SURFACE, USUALLY THE SKIN??NO DAYS

REACTIONS (4)
  - Dysgeusia [None]
  - Product odour abnormal [None]
  - Pulmonary congestion [None]
  - Dyspnoea [None]
